FAERS Safety Report 4410481-5 (Version None)
Quarter: 2004Q3

REPORT INFORMATION
  Report Type: 
  Country: None (occurrence: None)
  Receive Date: 20040726
  Receipt Date: 20040709
  Transmission Date: 20050211
  Serious: Yes (Hospitalization)
  Sender: FDA-Public Use
  Company Number: DSA_24663_2004

PATIENT
  Age: 72 Year
  Sex: Female

DRUGS (18)
  1. ENALAPRIL MALEATE AND HYDROCHLOROTHIAZIDE [Suspect]
     Indication: CARDIAC FAILURE
     Dosage: 1 TAB Q DAY PO
     Route: 048
     Dates: end: 20040616
  2. ENALAPRIL MALEATE AND HYDROCHLOROTHIAZIDE [Suspect]
     Indication: HYPERTENSION
     Dosage: 1 TAB Q DAY PO
     Route: 048
     Dates: end: 20040616
  3. ENALAPRIL MALEATE [Suspect]
     Dosage: 20 MG Q DAY PO
     Route: 048
     Dates: start: 20040617, end: 20040622
  4. PRIADEL [Suspect]
     Indication: BIPOLAR DISORDER
     Dosage: 400 MG Q DAY PO
     Route: 048
     Dates: start: 20040622, end: 20040622
  5. PRIADEL [Suspect]
     Indication: BIPOLAR DISORDER
     Dosage: 400 MG Q DAY PO
     Route: 048
     Dates: end: 20040610
  6. LITHIUM CARBONATE [Suspect]
     Indication: BIPOLAR DISORDER
     Dosage: 660 MG Q DAY PO
     Route: 048
     Dates: start: 20040611, end: 20040621
  7. LASIX [Suspect]
     Dosage: DF DAILY
     Dates: start: 20040614, end: 20040616
  8. CELEBREX [Suspect]
     Dosage: DF DAILY
     Dates: start: 20040609, end: 20040621
  9. ALDACTONE [Suspect]
     Dosage: 100 MG Q DAY PO
     Route: 048
     Dates: start: 20040617, end: 20040601
  10. SINTRON [Concomitant]
  11. DUOFER/ASCORBIC ACID/FERROUS SULFATE [Concomitant]
  12. ASPIRIN [Concomitant]
  13. RENITEN [Concomitant]
  14. NEXIUM [Concomitant]
  15. NOVOMIX [Concomitant]
  16. SUPRADYN [Concomitant]
  17. ANOMEL [Concomitant]
  18. ZOLOFT [Concomitant]

REACTIONS (8)
  - ATAXIA [None]
  - CONFUSIONAL STATE [None]
  - DRUG INTERACTION [None]
  - DRUG LEVEL INCREASED [None]
  - FALL [None]
  - HAEMATOMA [None]
  - SPEECH DISORDER [None]
  - TREMOR [None]
